FAERS Safety Report 5391633-7 (Version None)
Quarter: 2007Q3

REPORT INFORMATION
  Report Type: 
  Country: None (occurrence: None)
  Receive Date: 20070719
  Receipt Date: 20070705
  Transmission Date: 20080115
  Serious: Yes (Hospitalization, Other)
  Sender: FDA-Public Use
  Company Number: US-GILEAD-2007-0012651

PATIENT
  Age: 45 Year
  Sex: Female

DRUGS (3)
  1. VIREAD [Suspect]
     Indication: HIV INFECTION
  2. LOPINAVIR/RITONAVIR [Concomitant]
     Indication: HIV INFECTION
  3. DIDANOSINE [Concomitant]
     Indication: HIV INFECTION

REACTIONS (2)
  - FANCONI SYNDROME [None]
  - PATHOLOGICAL FRACTURE [None]
